FAERS Safety Report 13904532 (Version 3)
Quarter: 2017Q3

REPORT INFORMATION
  Report Type: Report from Study
  Country: SI (occurrence: SI)
  Receive Date: 20170825
  Receipt Date: 20170929
  Transmission Date: 20171127
  Serious: Yes (Hospitalization, Other)
  Sender: FDA-Public Use
  Company Number: SI-AMGEN-SVNNI2016091286

PATIENT
  Age: 71 Year
  Sex: Female

DRUGS (12)
  1. CARFILZOMIB [Suspect]
     Active Substance: CARFILZOMIB
     Indication: PLASMACYTOMA
     Dosage: 20 MG/M2 (39 MG), ON DAY 1 AND 2 (CYCLE 1)
     Route: 042
     Dates: start: 20160210
  2. CARFILZOMIB [Suspect]
     Active Substance: CARFILZOMIB
     Dosage: 56 MG/M2 (110 MG), ON DAY 8, 9, 15 AND 16 (CYCLE 1)
     Route: 042
     Dates: start: 2016
  3. BIOPREXANIL [Concomitant]
     Active Substance: PERINDOPRIL ARGININE
     Dosage: 10 MG, QD
     Route: 048
  4. ALLOPURINOL. [Concomitant]
     Active Substance: ALLOPURINOL
     Dosage: 300 MG, QD, LATER 100 MG, QD
     Dates: start: 20160212, end: 2016
  5. VALTREX [Concomitant]
     Active Substance: VALACYCLOVIR HYDROCHLORIDE
     Dosage: 500 MG, BID LATER 500 MG, QD
     Route: 048
     Dates: start: 20160212, end: 2016
  6. INSULIN [Concomitant]
     Active Substance: INSULIN NOS
     Indication: DIABETES MELLITUS
     Dosage: UNK
  7. CARFILZOMIB [Suspect]
     Active Substance: CARFILZOMIB
     Dosage: 110 MG, 6TIMES/MONTH
     Route: 042
     Dates: start: 2017
  8. INSULIN [Concomitant]
     Active Substance: INSULIN NOS
     Indication: DIABETES MELLITUS INADEQUATE CONTROL
     Dosage: CHANGED DOSE
     Dates: start: 2016
  9. CARFILZOMIB [Suspect]
     Active Substance: CARFILZOMIB
     Dosage: 56 MG/M2 (110 MG), ON DAY 1, 2, 8, 9, 15 AND 16 (CYCLE 2 AND SUBSEQUENT CYCLES)
     Route: 042
     Dates: start: 2016
  10. CARFILZOMIB [Suspect]
     Active Substance: CARFILZOMIB
     Dosage: 100 MG, EACH 14 DAYS
     Route: 042
     Dates: start: 201705
  11. DEXAMETHASONE. [Suspect]
     Active Substance: DEXAMETHASONE
     Indication: PLASMACYTOMA
     Dosage: 20 MG, ON DAY 1, 2, 8, 9, 15, 16, 22 AND 23
     Route: 065
     Dates: start: 20160212
  12. EUTHYROX [Concomitant]
     Active Substance: LEVOTHYROXINE SODIUM
     Dosage: 50 MG, QD
     Route: 048

REACTIONS (13)
  - Diabetes mellitus inadequate control [Unknown]
  - Pulmonary hypertension [Unknown]
  - Dermatitis [Unknown]
  - Oedema peripheral [Unknown]
  - Dyspnoea [Unknown]
  - Bronchitis [Unknown]
  - Thrombophlebitis [Unknown]
  - Psoriasis [Unknown]
  - Hypertension [Unknown]
  - Urinary tract infection [Unknown]
  - Pharyngotonsillitis [Unknown]
  - Liver disorder [Unknown]
  - Rash maculo-papular [Unknown]

NARRATIVE: CASE EVENT DATE: 2016
